FAERS Safety Report 15192231 (Version 2)
Quarter: 2018Q3

REPORT INFORMATION
  Report Type: Spontaneous
  Country: US (occurrence: US)
  Receive Date: 20180724
  Receipt Date: 20180726
  Transmission Date: 20181010
  Serious: No
  Sender: FDA-Public Use
  Company Number: US-009507513-1807USA010569

PATIENT
  Sex: Female

DRUGS (3)
  1. LATUDA [Suspect]
     Active Substance: LURASIDONE HYDROCHLORIDE
  2. SEROQUEL [Suspect]
     Active Substance: QUETIAPINE FUMARATE
  3. MK?0000 [Suspect]
     Active Substance: INVESTIGATIONAL PRODUCT
     Route: 048

REACTIONS (6)
  - Aggression [Unknown]
  - Depression [Unknown]
  - Drug ineffective [Unknown]
  - Adverse event [Unknown]
  - Tremor [Unknown]
  - Agitation [Unknown]
